FAERS Safety Report 8790557 (Version 1)
Quarter: 2012Q4

REPORT INFORMATION
  Report Type: Spontaneous
  Country: US (occurrence: None)
  Receive Date: 20120912
  Receipt Date: 20120912
  Transmission Date: 20130627
  Serious: No
  Sender: FDA-Public Use
  Company Number: None

PATIENT
  Age: 57 Year
  Sex: Male
  Weight: 95.2 kg

DRUGS (2)
  1. TELAPREVIR [Suspect]
     Indication: HEPATITIS C
     Route: 048
     Dates: start: 20120423, end: 20120716
  2. TELAPREVIR [Suspect]
     Route: 048
     Dates: start: 20120423, end: 20120716

REACTIONS (1)
  - Pancytopenia [None]
